FAERS Safety Report 11265205 (Version 1)
Quarter: 2015Q3

REPORT INFORMATION
  Report Type: Spontaneous
  Country: US (occurrence: US)
  Receive Date: 20150713
  Receipt Date: 20150713
  Transmission Date: 20151125
  Serious: Yes (Other)
  Sender: FDA-Public Use
  Company Number: US-UCBSA-2015021796

PATIENT
  Age: 0 Year
  Sex: Female

DRUGS (2)
  1. CIMZIA [Suspect]
     Active Substance: CERTOLIZUMAB PEGOL
     Indication: CROHN^S DISEASE
     Dosage: UNK
     Route: 064
     Dates: start: 20140828, end: 20150608
  2. CIMZIA [Suspect]
     Active Substance: CERTOLIZUMAB PEGOL
     Dosage: UNK
     Route: 063
     Dates: start: 201506

REACTIONS (3)
  - Breast feeding [Unknown]
  - Foetal exposure during pregnancy [Unknown]
  - Postmature baby [Recovered/Resolved]

NARRATIVE: CASE EVENT DATE: 20140828
